FAERS Safety Report 17091897 (Version 2)
Quarter: 2019Q4

REPORT INFORMATION
  Report Type: Report from Study
  Country: CO (occurrence: CO)
  Receive Date: 20191129
  Receipt Date: 20191209
  Transmission Date: 20200122
  Serious: Yes (Other)
  Sender: FDA-Public Use
  Company Number: CO-AMGEN-COLSL2019178479

PATIENT
  Age: 51 Year
  Sex: Female

DRUGS (1)
  1. VECTIBIX [Suspect]
     Active Substance: PANITUMUMAB
     Indication: COLORECTAL CANCER METASTATIC
     Dosage: 270 MILLIGRAM, Q2WK
     Route: 042
     Dates: start: 20190923

REACTIONS (7)
  - Rash [Recovering/Resolving]
  - Nasal discomfort [Recovering/Resolving]
  - Erythema of eyelid [Recovering/Resolving]
  - Throat irritation [Recovering/Resolving]
  - Blepharitis [Recovering/Resolving]
  - Swelling of eyelid [Recovering/Resolving]
  - Genital burning sensation [Recovering/Resolving]

NARRATIVE: CASE EVENT DATE: 20191010
